FAERS Safety Report 6892387-5 (Version None)
Quarter: 2010Q3

REPORT INFORMATION
  Report Type: 
  Country: None (occurrence: None)
  Receive Date: 20100731
  Receipt Date: 20080520
  Transmission Date: 20110219
  Serious: No
  Sender: FDA-Public Use
  Company Number: US-PFIZER INC-2008041133

PATIENT
  Sex: Female
  Weight: 59.09 kg

DRUGS (6)
  1. NEURONTIN [Suspect]
     Indication: NEUROPATHY PERIPHERAL
     Dates: start: 20050101, end: 20080506
  2. COZAAR [Concomitant]
  3. PREMARIN [Concomitant]
  4. ALLEGRA [Concomitant]
  5. NASAREL [Concomitant]
  6. SUCRALFATE [Concomitant]

REACTIONS (2)
  - DIZZINESS [None]
  - DRUG INEFFECTIVE [None]
